FAERS Safety Report 16935682 (Version 1)
Quarter: 2019Q4

REPORT INFORMATION
  Report Type: Spontaneous
  Country: IN (occurrence: IN)
  Receive Date: 20191018
  Receipt Date: 20191018
  Transmission Date: 20200122
  Serious: Yes (Other)
  Sender: FDA-Public Use
  Company Number: IN-PFIZER INC-2019155950

PATIENT
  Age: 45 Year
  Sex: Female

DRUGS (3)
  1. CALMING [Concomitant]
     Dosage: UNK
     Dates: start: 20171219
  2. PALBACE [Suspect]
     Active Substance: PALBOCICLIB
     Indication: BREAST CANCER METASTATIC
     Dosage: 125 MG, 1X/DAY
     Route: 048
     Dates: start: 20171207
  3. FEMARA [Concomitant]
     Active Substance: LETROZOLE
     Dosage: UNK
     Dates: start: 20171219

REACTIONS (3)
  - Skin hypertrophy [Unknown]
  - Neuropathy peripheral [Unknown]
  - Blood creatinine abnormal [Unknown]
